FAERS Safety Report 4314684-X (Version None)
Quarter: 2004Q1

REPORT INFORMATION
  Report Type: 
  Country: None (occurrence: None)
  Receive Date: 20040308
  Receipt Date: 20040301
  Transmission Date: 20041129
  Serious: Yes (Hospitalization)
  Sender: FDA-Public Use
  Company Number: FR-JNJFOC-20040203706

PATIENT
  Age: 58 Year
  Sex: Female

DRUGS (15)
  1. TRAMADOL HCL [Suspect]
     Indication: DRUG USE FOR UNKNOWN INDICATION
     Dates: start: 20030901, end: 20031031
  2. PRISTINAMYCINE (PRISTINAMYCIN) [Concomitant]
     Indication: DRUG USE FOR UNKNOWN INDICATION
     Dosage: ORAL
     Route: 048
     Dates: start: 20031009, end: 20031031
  3. PREDNISOLONE [Suspect]
     Indication: DRUG USE FOR UNKNOWN INDICATION
     Dates: start: 20030909, end: 20031031
  4. ALLOPURINOL [Suspect]
     Indication: DRUG USE FOR UNKNOWN INDICATION
     Dosage: ORAL
     Route: 048
  5. CALCIPARINE [Suspect]
     Indication: DRUG USE FOR UNKNOWN INDICATION
     Dosage: SUBCUTANEOUS
     Route: 058
     Dates: start: 20031010, end: 20031106
  6. VANCOMYCIN [Suspect]
     Indication: DRUG USE FOR UNKNOWN INDICATION
     Dosage: INTRAVENOUS
     Route: 042
     Dates: start: 20031009, end: 20031025
  7. INSULIN (INSULIN) UNSPECIFIED [Concomitant]
  8. ACTRAPID (UNSPECIFIED) INSULIN HUMAN [Concomitant]
  9. PROZAC (FLUOXETINE HYDROCHLORIDE) UNSPECIFIED [Concomitant]
  10. HEMIGOXINE (DIGOXIN) UNSPECIFIED [Concomitant]
  11. BURINEX (BUMETANIDE) UNSPECIFIED [Concomitant]
  12. PREVISCAN (FLUINDIONE) UNSPECIFIED [Concomitant]
  13. INSULTARD (INSULIN HUMAN) INJECTION [Concomitant]
  14. LEXOMIL (BROMAZEPAM) UNSPECIFIED [Concomitant]
  15. CORDARONE (AMIODARONE HYDROCHLORIDE) UNSPECIFIED [Concomitant]

REACTIONS (7)
  - CHOLESTASIS [None]
  - CONDITION AGGRAVATED [None]
  - CREATININE RENAL CLEARANCE DECREASED [None]
  - DRUG INTERACTION [None]
  - EOSINOPHILIA [None]
  - PRURIGO [None]
  - RASH ERYTHEMATOUS [None]
